FAERS Safety Report 5794375-9 (Version None)
Quarter: 2008Q2

REPORT INFORMATION
  Report Type: 
  Country: None (occurrence: None)
  Receive Date: 20080617
  Receipt Date: 20080610
  Transmission Date: 20081010
  Serious: Yes (Life-Threatening, Other)
  Sender: FDA-Public Use
  Company Number: JHP200800166

PATIENT
  Age: 4 Year
  Sex: Female

DRUGS (1)
  1. APLISOL [Suspect]
     Indication: SKIN TEST
     Dosage: 0.1 ML, SINGLE, INTRADERMAL
     Route: 023
     Dates: start: 20080501, end: 20080501

REACTIONS (1)
  - ANAPHYLACTIC REACTION [None]
